FAERS Safety Report 24801694 (Version 1)
Quarter: 2025Q1

REPORT INFORMATION
  Report Type: Spontaneous
  Country: US (occurrence: US)
  Receive Date: 20250102
  Receipt Date: 20250102
  Transmission Date: 20250409
  Serious: No
  Sender: AMGEN
  Company Number: US-AMGEN-USASP2024255358

PATIENT
  Age: 70 Year
  Sex: Male

DRUGS (1)
  1. REPATHA [Suspect]
     Active Substance: EVOLOCUMAB
     Indication: Product used for unknown indication
     Dosage: 140 MILLIGRAM, Q2WK
     Route: 065
     Dates: start: 202411

REACTIONS (14)
  - Swollen tongue [Recovered/Resolved]
  - Erythema [Recovered/Resolved]
  - Pruritus [Recovered/Resolved]
  - Rhinorrhoea [Recovered/Resolved]
  - Nasopharyngitis [Recovered/Resolved]
  - Sneezing [Recovered/Resolved]
  - Back pain [Recovered/Resolved]
  - Influenza [Recovered/Resolved]
  - Secretion discharge [Unknown]
  - Device difficult to use [Unknown]
  - Incorrect disposal of product [Unknown]
  - Accidental exposure to product [Unknown]
  - Incorrect dose administered by device [Unknown]
  - Product communication issue [Unknown]

NARRATIVE: CASE EVENT DATE: 20240101
